FAERS Safety Report 6883813-6 (Version None)
Quarter: 2010Q3

REPORT INFORMATION
  Report Type: 
  Country: None (occurrence: None)
  Receive Date: 20100727
  Receipt Date: 20100721
  Transmission Date: 20110219
  Serious: Yes (Other)
  Sender: FDA-Public Use
  Company Number: A0871629A

PATIENT
  Sex: Male

DRUGS (1)
  1. UREA PEROXIDE [Suspect]
     Dosage: EAR DROPS
     Route: 001

REACTIONS (1)
  - DEAFNESS [None]
